FAERS Safety Report 7553061-5 (Version None)
Quarter: 2011Q2

REPORT INFORMATION
  Report Type: 
  Country: None (occurrence: None)
  Receive Date: 20110616
  Receipt Date: 20110613
  Transmission Date: 20111010
  Serious: Yes (Hospitalization)
  Sender: FDA-Public Use
  Company Number: JP-MERCK-1106USA01858

PATIENT
  Age: 70 Year
  Sex: Female

DRUGS (3)
  1. BEZATOL SR [Suspect]
     Route: 048
  2. JANUVIA [Suspect]
     Indication: TYPE 2 DIABETES MELLITUS
     Route: 048
     Dates: start: 20110427, end: 20110506
  3. ALLOPURINOL [Suspect]
     Route: 048

REACTIONS (1)
  - RHABDOMYOLYSIS [None]
